FAERS Safety Report 9760250 (Version 1)
Quarter: 2013Q4

REPORT INFORMATION
  Report Type: Spontaneous
  Country: US (occurrence: US)
  Receive Date: 20131216
  Receipt Date: 20131216
  Transmission Date: 20140711
  Serious: No
  Sender: FDA-Public Use
  Company Number: US-GILEAD-2010-0028925

PATIENT
  Sex: Female
  Weight: 69.13 kg

DRUGS (10)
  1. LETAIRIS [Suspect]
     Indication: PULMONARY ARTERIAL HYPERTENSION
     Route: 048
     Dates: start: 20090505
  2. ADCIRCA [Concomitant]
  3. FUROSEMIDE [Concomitant]
  4. HYDROCORTISONE [Concomitant]
  5. LEVOTHYROXINE [Concomitant]
  6. PREDNISONE [Concomitant]
  7. KLOR-CON [Concomitant]
  8. TYLENOL ARTHRITIS [Concomitant]
  9. DIOVAN [Concomitant]
  10. FLUDROCORTISONE [Concomitant]

REACTIONS (2)
  - Pain in extremity [Unknown]
  - Local swelling [Unknown]
